FAERS Safety Report 6084542-1 (Version None)
Quarter: 2009Q1

REPORT INFORMATION
  Report Type: 
  Country: None (occurrence: None)
  Receive Date: 20090219
  Receipt Date: 20090107
  Transmission Date: 20090719
  Serious: Yes (Disabling)
  Sender: FDA-Public Use
  Company Number: GB-PFIZER INC-2008152571

PATIENT

DRUGS (1)
  1. GABAPENTIN [Suspect]
     Indication: NEURALGIA
     Dosage: 300 MG, 3X/DAY
     Route: 048
     Dates: start: 20080801, end: 20081101

REACTIONS (9)
  - AGITATION [None]
  - DEPRESSION [None]
  - DIZZINESS [None]
  - FATIGUE [None]
  - FEELING DRUNK [None]
  - LOSS OF LIBIDO [None]
  - MOOD SWINGS [None]
  - MOTOR DYSFUNCTION [None]
  - TREMOR [None]
